FAERS Safety Report 6494464-X (Version None)
Quarter: 2009Q4

REPORT INFORMATION
  Report Type: 
  Country: None (occurrence: None)
  Receive Date: 20091214
  Receipt Date: 20090220
  Transmission Date: 20100525
  Serious: Yes (Hospitalization)
  Sender: FDA-Public Use
  Company Number: US-BRISTOL-MYERS SQUIBB COMPANY-14514673

PATIENT
  Age: 33 Year
  Sex: Male
  Weight: 68 kg

DRUGS (5)
  1. ABILIFY [Suspect]
     Dates: start: 20081203
  2. EFFEXOR XR [Concomitant]
  3. LITHIUM CARBONATE [Concomitant]
  4. CLONAZEPAM [Concomitant]
  5. LAMICTAL [Concomitant]

REACTIONS (1)
  - CONVULSION [None]
